FAERS Safety Report 14630683 (Version 2)
Quarter: 2018Q1

REPORT INFORMATION
  Report Type: Spontaneous
  Country: IT (occurrence: IT)
  Receive Date: 20180313
  Receipt Date: 20180320
  Transmission Date: 20180509
  Serious: Yes (Life-Threatening, Hospitalization, Other)
  Sender: FDA-Public Use
  Company Number: IT-AUROBINDO-AUR-APL-2018-012568

PATIENT
  Age: 40 Day
  Sex: Male
  Weight: 4.5 kg

DRUGS (4)
  1. LAMOTRIGINE. [Suspect]
     Active Substance: LAMOTRIGINE
     Dosage: IN THE THIRD TRIMESTER
     Route: 063
  2. LAMOTRIGINE. [Suspect]
     Active Substance: LAMOTRIGINE
     Dosage: IN THE THIRD TRIMESTER
     Route: 064
  3. LAMOTRIGINE. [Suspect]
     Active Substance: LAMOTRIGINE
     Route: 064
  4. LAMOTRIGINE. [Suspect]
     Active Substance: LAMOTRIGINE
     Indication: EPILEPSY
     Route: 063

REACTIONS (8)
  - Flatulence [Recovering/Resolving]
  - Crying [Recovering/Resolving]
  - Foetal exposure during pregnancy [Recovering/Resolving]
  - Maternal exposure during breast feeding [Recovered/Resolved]
  - Normochromic normocytic anaemia [Recovering/Resolving]
  - Food refusal [Recovering/Resolving]
  - Neutropenia [Recovering/Resolving]
  - Pallor [Recovering/Resolving]
